FAERS Safety Report 25359700 (Version 3)
Quarter: 2025Q3

REPORT INFORMATION
  Report Type: Report from Study
  Country: EU (occurrence: EU)
  Receive Date: 20250526
  Receipt Date: 20250703
  Transmission Date: 20251020
  Serious: Yes (Life-Threatening, Hospitalization, Other)
  Sender: MYLAN
  Company Number: EU-MYLANLABS-2025M1043815

PATIENT
  Age: 46 Year
  Sex: Male

DRUGS (12)
  1. CLOZAPINE [Suspect]
     Active Substance: CLOZAPINE
     Indication: Schizophrenia
     Dosage: UNK QD  (450 PLUS 700 MG PER DAY)
     Dates: start: 1997, end: 2002
  2. CLOZAPINE [Suspect]
     Active Substance: CLOZAPINE
     Dosage: UNK, BID (450 MG (8 AM) X 1 (PER DAY) AND 700 MG, X 1 (PER DAY) (8 PM))
     Dates: start: 2002
  3. HERBALS\PLANTAGO OVATA LEAF [Suspect]
     Active Substance: HERBALS\PLANTAGO OVATA LEAF
     Indication: Product used for unknown indication
     Dosage: 1 DOSAGE FORM, QD (1 DOSE, ORALLY, X 1 PER DAY)
  4. CHOLECALCIFEROL [Suspect]
     Active Substance: CHOLECALCIFEROL
     Indication: Product used for unknown indication
     Dosage: 20 MICROGRAM, AM (20 ?G, X 1 PER DAY, 8 AM)
  5. POTASSIUM CHLORIDE [Concomitant]
     Active Substance: POTASSIUM CHLORIDE
     Dosage: 1000 MILLIGRAM, AM (AM WITH BREAKFAST)
  6. QUETIAPINE [Concomitant]
     Active Substance: QUETIAPINE
     Dosage: 300 MILLIGRAM, PM (PM X 1 PER DAY 8 PM)
  7. POLYETHYLENE GLYCOLS [Concomitant]
     Active Substance: POLYETHYLENE GLYCOLS
     Dosage: 12 GRAM, AM (12 G, X 1 PER DAY 8AM)
  8. PROPRANOLOL [Concomitant]
     Active Substance: PROPRANOLOL HYDROCHLORIDE
     Dosage: 10 MILLIGRAM, BID (10 MILLIGRAM 10 MG X 2 PER DAY 8 AM AND 8 PM)
  9. IBUPROFEN [Concomitant]
     Active Substance: IBUPROFEN
  10. NICOTINE [Concomitant]
     Active Substance: NICOTINE
  11. NICOTINE [Concomitant]
     Active Substance: NICOTINE
  12. ZOPICLONE [Concomitant]
     Active Substance: ZOPICLONE

REACTIONS (4)
  - Ileus [Recovered/Resolved]
  - Neutropenia [Recovered/Resolved]
  - Antipsychotic drug level increased [Recovered/Resolved]
  - Off label use [Not Recovered/Not Resolved]

NARRATIVE: CASE EVENT DATE: 19970101
